FAERS Safety Report 5887158-2 (Version None)
Quarter: 2008Q3

REPORT INFORMATION
  Report Type: 
  Country: None (occurrence: None)
  Receive Date: 20080917
  Receipt Date: 20080910
  Transmission Date: 20090109
  Serious: Yes (Hospitalization)
  Sender: FDA-Public Use
  Company Number: JP-MERCK-0809USA01634

PATIENT
  Age: 79 Year
  Sex: Male

DRUGS (3)
  1. COZAAR [Suspect]
     Route: 048
     Dates: start: 20070201
  2. COZAAR [Suspect]
     Route: 048
     Dates: start: 20070201
  3. ZOCOR [Concomitant]
     Route: 048
     Dates: start: 20070201

REACTIONS (2)
  - ALTERED STATE OF CONSCIOUSNESS [None]
  - BLOOD GLUCOSE DECREASED [None]
